FAERS Safety Report 8880035 (Version 1)
Quarter: 2012Q4

REPORT INFORMATION
  Report Type: 
  Country: JP (occurrence: JP)
  Receive Date: 20121031
  Receipt Date: 20121031
  Transmission Date: 20130627
  Serious: Yes (Death)
  Sender: FDA-Public Use
  Company Number: JP-009507513-1210JPN012772

PATIENT
  Age: 85 Year
  Sex: Male

DRUGS (1)
  1. ZETIA [Suspect]
     Indication: DYSLIPIDAEMIA
     Dosage: 10 mg, qd
     Route: 048
     Dates: end: 20120125

REACTIONS (1)
  - Ventricular fibrillation [Fatal]
